FAERS Safety Report 21022945 (Version 1)
Quarter: 2022Q2

REPORT INFORMATION
  Report Type: Spontaneous
  Country: CN (occurrence: CN)
  Receive Date: 20220629
  Receipt Date: 20220629
  Transmission Date: 20220721
  Serious: Yes (Hospitalization)
  Sender: FDA-Public Use
  Company Number: CN-009507513-2206CHN007497

PATIENT
  Age: 38 Year
  Sex: Female
  Weight: 50 kg

DRUGS (4)
  1. CANCIDAS [Suspect]
     Active Substance: CASPOFUNGIN ACETATE
     Indication: Sepsis
     Dosage: 50 MG, ONCE A DAY
     Route: 041
     Dates: start: 20220603, end: 20220610
  2. CANCIDAS [Suspect]
     Active Substance: CASPOFUNGIN ACETATE
     Indication: Anti-infective therapy
  3. POLYMYXIN B SULFATE [Suspect]
     Active Substance: POLYMYXIN B SULFATE
     Indication: Sepsis
     Dosage: 50 X10000U, TWICE A DAY
     Route: 041
     Dates: start: 20220602, end: 20220607
  4. POLYMYXIN B SULFATE [Suspect]
     Active Substance: POLYMYXIN B SULFATE
     Indication: Anti-infective therapy

REACTIONS (8)
  - Vulvovaginal swelling [Recovering/Resolving]
  - Vulvovaginal pain [Recovering/Resolving]
  - Drug eruption [Recovering/Resolving]
  - Pruritus [Recovering/Resolving]
  - Swelling face [Recovering/Resolving]
  - Trismus [Unknown]
  - Mouth ulceration [Unknown]
  - Abscess oral [Unknown]

NARRATIVE: CASE EVENT DATE: 20220604
